FAERS Safety Report 7972259-5 (Version None)
Quarter: 2011Q4

REPORT INFORMATION
  Report Type: 
  Country: None (occurrence: None)
  Receive Date: 20111213
  Receipt Date: 20111206
  Transmission Date: 20120403
  Serious: Yes (Other)
  Sender: FDA-Public Use
  Company Number: US-BIOGENIDEC-2011BI031095

PATIENT
  Age: 36 Year
  Sex: Female
  Weight: 73 kg

DRUGS (9)
  1. CHOLECALCIFEROL [Concomitant]
  2. CRANBERRY EXTRACT [Concomitant]
     Route: 048
  3. FISH OIL [Concomitant]
     Route: 048
  4. MULTI-VITAMINS [Concomitant]
  5. TYSABRI [Suspect]
     Indication: MULTIPLE SCLEROSIS
     Route: 042
     Dates: start: 20100120, end: 20110527
  6. LACTOBACILLUS [Concomitant]
     Route: 048
  7. VITAMIN B COMPLEX CAP [Concomitant]
  8. PROGESTERONE [Concomitant]
     Route: 048
  9. ASCORBIC ACID [Concomitant]
     Route: 048

REACTIONS (2)
  - ABORTION SPONTANEOUS [None]
  - TWIN PREGNANCY [None]
